FAERS Safety Report 7905431-0 (Version None)
Quarter: 2011Q4

REPORT INFORMATION
  Report Type: 
  Country: None (occurrence: None)
  Receive Date: 20111109
  Receipt Date: 20111027
  Transmission Date: 20120403
  Serious: Yes (Hospitalization)
  Sender: FDA-Public Use
  Company Number: JP-MYLANLABS-2011S1022688

PATIENT
  Age: 26 Year
  Sex: Female

DRUGS (3)
  1. DIPHENHYDRAMINE HCL [Suspect]
     Route: 048
  2. NORTRIPTYLINE HCL [Suspect]
     Route: 048
  3. AMOXAPINE [Suspect]
     Route: 048

REACTIONS (6)
  - CLONIC CONVULSION [None]
  - SUPRAVENTRICULAR TACHYCARDIA [None]
  - TACHYPNOEA [None]
  - OVERDOSE [None]
  - VENTRICULAR FIBRILLATION [None]
  - SOMNOLENCE [None]
